FAERS Safety Report 17213454 (Version 1)
Quarter: 2020Q1

REPORT INFORMATION
  Report Type: Spontaneous
  Country: US (occurrence: US)
  Receive Date: 20191227
  Receipt Date: 20191227
  Transmission Date: 20200409
  Serious: Yes (Life-Threatening, Hospitalization)
  Sender: FDA-Public Use
  Company Number: None

PATIENT
  Age: 61 Year
  Sex: Male

DRUGS (15)
  1. SSD CRE 1% [Concomitant]
  2. POT CL MICRO TAB 10MEQ ER [Concomitant]
  3. ESCITALOPRAM TAB 20MG [Concomitant]
  4. PIOGLITAZONE TAB 15MG [Concomitant]
  5. TIZANIDINE TAB 4MG [Concomitant]
  6. HUMIRA [Suspect]
     Active Substance: ADALIMUMAB
     Indication: PRODUCT USED FOR UNKNOWN INDICATION
     Dosage: ?          OTHER FREQUENCY:EVERY OTHER WEEK;?
     Route: 058
  7. ATORVASTATIN TAB 20 MG [Concomitant]
  8. PREDISONE TAB 10MG [Concomitant]
  9. LISINOPRIL TAB 20MG [Concomitant]
     Active Substance: LISINOPRIL
  10. FUROSEMIDE TAB 40MG [Concomitant]
  11. FUROSEMIDE TAB 40MG [Concomitant]
  12. FOLIC ACID TAB 1000MCG [Concomitant]
  13. IPRATROPIUM/ SOL ALBUTER [Concomitant]
  14. METOPROL SUC TAB 50MG ER [Concomitant]
  15. HYDROXYCHLOR TAB 200 MG [Concomitant]

REACTIONS (5)
  - Pneumonia [None]
  - Sepsis [None]
  - Pasteurella infection [None]
  - Renal failure [None]
  - Coma [None]

NARRATIVE: CASE EVENT DATE: 20191118
